FAERS Safety Report 5792323-9 (Version None)
Quarter: 2008Q2

REPORT INFORMATION
  Report Type: 
  Country: None (occurrence: None)
  Receive Date: 20080626
  Receipt Date: 20080327
  Transmission Date: 20081010
  Serious: No
  Sender: FDA-Public Use
  Company Number: US-ASTRAZENECA-2008UW06199

PATIENT
  Age: 83 Year
  Sex: Female
  Weight: 73.9 kg

DRUGS (3)
  1. PULMICORT RESPULES [Suspect]
     Indication: CHRONIC OBSTRUCTIVE PULMONARY DISEASE
     Route: 055
     Dates: start: 20040101
  2. PREDNISONE [Concomitant]
  3. VITAMIN [Concomitant]

REACTIONS (2)
  - ALOPECIA [None]
  - TOOTH LOSS [None]
